FAERS Safety Report 23511511 (Version 1)
Quarter: 2024Q1

REPORT INFORMATION
  Report Type: Spontaneous
  Country: US (occurrence: US)
  Receive Date: 20240212
  Receipt Date: 20240212
  Transmission Date: 20240410
  Serious: Yes (Hospitalization)
  Sender: FDA-Public Use
  Company Number: US-RECORDATI RARE DISEASE INC.-2023009345

PATIENT

DRUGS (2)
  1. PANHEMATIN [Suspect]
     Active Substance: HEMIN
     Indication: Porphyria acute
     Dosage: UNK
  2. DEXTROSE [Suspect]
     Active Substance: DEXTROSE\DEXTROSE MONOHYDRATE
     Indication: Product used for unknown indication

REACTIONS (8)
  - Autonomic nervous system imbalance [Recovering/Resolving]
  - Nervous system disorder [Recovering/Resolving]
  - Gastrointestinal disorder [Recovering/Resolving]
  - Pain [Recovering/Resolving]
  - Heart rate increased [Recovered/Resolved]
  - Panic attack [Unknown]
  - Gastrointestinal disorder [Unknown]
  - Respiratory tract infection [Unknown]

NARRATIVE: CASE EVENT DATE: 20230101
